FAERS Safety Report 24322211 (Version 2)
Quarter: 2024Q3

REPORT INFORMATION
  Report Type: Spontaneous
  Country: US (occurrence: US)
  Receive Date: 20240916
  Receipt Date: 20240922
  Transmission Date: 20241016
  Serious: Yes (Other)
  Sender: HIKMA
  Company Number: US-MLMSERVICE-20240830-PI177751-00149-1

PATIENT

DRUGS (2)
  1. FLECAINIDE [Suspect]
     Active Substance: FLECAINIDE
     Indication: Palpitations
     Dosage: 150 MILLIGRAM, Q12H
     Route: 065
  2. METOPROLOL SUCCINATE [Concomitant]
     Active Substance: METOPROLOL SUCCINATE
     Indication: Palpitations
     Dosage: 25 MILLIGRAM, QD, IN THE MORNING
     Route: 065

REACTIONS (5)
  - Atrial conduction time prolongation [Recovered/Resolved]
  - Vision blurred [Recovering/Resolving]
  - Electrocardiogram QRS complex prolonged [Recovering/Resolving]
  - Sinus bradycardia [Recovering/Resolving]
  - Toxicity to various agents [Unknown]
